FAERS Safety Report 22116825 (Version 1)
Quarter: 2023Q1

REPORT INFORMATION
  Report Type: Spontaneous
  Country: US (occurrence: US)
  Receive Date: 20230320
  Receipt Date: 20230320
  Transmission Date: 20230417
  Serious: No
  Sender: FDA-Public Use
  Company Number: US-GALDERMA-US2023000779

PATIENT

DRUGS (1)
  1. CLOBEX [Suspect]
     Active Substance: CLOBETASOL PROPIONATE
     Indication: Alopecia
     Dosage: 1 DOSAGE FORM
     Route: 061

REACTIONS (3)
  - Off label use [Recovered/Resolved]
  - Product use issue [Recovered/Resolved]
  - Drug effective for unapproved indication [Recovered/Resolved]
